FAERS Safety Report 24774469 (Version 1)
Quarter: 2024Q4

REPORT INFORMATION
  Report Type: Spontaneous
  Country: JP (occurrence: JP)
  Receive Date: 20241225
  Receipt Date: 20241225
  Transmission Date: 20250114
  Serious: Yes (Other)
  Sender: GENMAB
  Company Number: JP-GENMAB-2024-04735

PATIENT
  Age: 70 Year
  Sex: Female

DRUGS (2)
  1. EPKINLY [Suspect]
     Active Substance: EPCORITAMAB-BYSP
     Indication: Diffuse large B-cell lymphoma
     Dosage: UNK
     Route: 058
     Dates: start: 20241127
  2. EPKINLY [Suspect]
     Active Substance: EPCORITAMAB-BYSP
     Dosage: 48 MILLIGRAM, FULL DOSE
     Route: 058
     Dates: start: 20241211, end: 20241211

REACTIONS (1)
  - Cytomegalovirus enterocolitis [Recovered/Resolved]

NARRATIVE: CASE EVENT DATE: 20241212
